FAERS Safety Report 6678915-3 (Version None)
Quarter: 2010Q2

REPORT INFORMATION
  Report Type: 
  Country: None (occurrence: None)
  Receive Date: 20100413
  Receipt Date: 20100401
  Transmission Date: 20101027
  Serious: Yes (Other)
  Sender: FDA-Public Use
  Company Number: DE-JNJFOC-20100401087

PATIENT
  Age: 14 Year
  Sex: Male
  Weight: 47.7 kg

DRUGS (3)
  1. REMICADE [Suspect]
     Indication: CROHN'S DISEASE
     Route: 042
  2. REMICADE [Suspect]
     Route: 042
  3. AZATHIOPRINE [Concomitant]
     Indication: CROHN'S DISEASE

REACTIONS (9)
  - BRONCHOSPASM [None]
  - DYSPNOEA [None]
  - FACE OEDEMA [None]
  - FLUSHING [None]
  - INFUSION RELATED REACTION [None]
  - LARYNGEAL OEDEMA [None]
  - NAUSEA [None]
  - RASH [None]
  - TACHYCARDIA [None]
